FAERS Safety Report 8239709-0 (Version None)
Quarter: 2012Q1

REPORT INFORMATION
  Report Type: 
  Country: None (occurrence: None)
  Receive Date: 20120328
  Receipt Date: 20120214
  Transmission Date: 20120608
  Serious: Yes (Other)
  Sender: FDA-Public Use
  Company Number: PHHY2010JP64919

PATIENT
  Sex: Male
  Weight: 25 kg

DRUGS (12)
  1. MYCOPHENOLATE MOFETIL [Concomitant]
     Dosage: UNK UKN, UNK
     Route: 048
  2. PROGRAF [Concomitant]
     Indication: RENAL TRANSPLANT
     Dosage: 2 MG, UNK
     Route: 048
     Dates: start: 20100423
  3. COTRIM [Concomitant]
     Indication: PROPHYLAXIS
     Dosage: 0.5 MG, UNK
     Route: 048
     Dates: start: 20100525
  4. FERROUS CITRATE [Concomitant]
     Indication: IRON DEFICIENCY ANAEMIA
     Dosage: 50 MG, UNK
     Route: 048
     Dates: start: 20100713
  5. SIMULECT [Suspect]
     Dosage: 10 MG, ONCE/SINGLE
     Route: 042
     Dates: start: 20100504, end: 20100504
  6. MYCOPHENOLATE MOFETIL (CELLCEPT) [Concomitant]
     Indication: RENAL TRANSPLANT
     Dosage: 500 MG, UNK
     Route: 048
     Dates: start: 20100423
  7. SIMULECT [Suspect]
     Indication: RENAL TRANSPLANT
     Dosage: 10 MG, ONCE/SINGLE
     Route: 042
     Dates: start: 20100430, end: 20100430
  8. TACROLIMUS [Concomitant]
     Dosage: UNK UKN, UNK
     Route: 048
  9. METHYLPREDNISOLONE [Concomitant]
     Dosage: UNK UKN, UNK
     Route: 048
  10. MEDROL [Concomitant]
     Indication: RENAL TRANSPLANT
     Dosage: 2 MG, UNK
     Route: 048
     Dates: start: 20100423, end: 20101108
  11. RITUXIMAB [Concomitant]
     Dosage: 100 MG, UNK
  12. CEFAZOLIN SODIUM [Concomitant]
     Indication: INFECTION PROPHYLAXIS
     Dosage: 1 G, UNK
     Route: 048
     Dates: start: 20100430, end: 20100504

REACTIONS (5)
  - SEDATION [None]
  - CONVULSION [None]
  - BRAIN OEDEMA [None]
  - HYPONATRAEMIA [None]
  - RENAL TUBULAR DISORDER [None]
